FAERS Safety Report 9346278 (Version 1)
Quarter: 2013Q2

REPORT INFORMATION
  Report Type: Spontaneous
  Country: FR (occurrence: FR)
  Receive Date: 20130613
  Receipt Date: 20130613
  Transmission Date: 20140414
  Serious: Yes (Death)
  Sender: FDA-Public Use
  Company Number: FR-SANOFI-AVENTIS-2013SA057704

PATIENT
  Age: 63 Year
  Sex: Female

DRUGS (14)
  1. RIFAMPICIN [Suspect]
     Indication: INFECTION
     Route: 065
     Dates: start: 20130111, end: 20130213
  2. OFLOCET [Suspect]
     Indication: INFECTION
     Route: 048
     Dates: start: 20130111, end: 20130122
  3. RAMIPRIL [Concomitant]
  4. FENOFIBRATE [Concomitant]
  5. LAROXYL [Concomitant]
  6. CYMBALTA [Concomitant]
  7. LIORESAL [Concomitant]
  8. VITAMINS [Concomitant]
  9. TARDYFERON [Concomitant]
  10. DIFFU K [Concomitant]
  11. LASILIX [Concomitant]
  12. ORBENINE [Concomitant]
     Dates: start: 20121203, end: 20130111
  13. GENTAMICIN [Concomitant]
     Dates: start: 20121203
  14. OFLOCET [Concomitant]
     Indication: INFECTION
     Route: 042
     Dates: end: 20130111

REACTIONS (5)
  - Renal failure acute [Fatal]
  - Blood urea increased [Fatal]
  - Blood creatinine increased [Fatal]
  - Renal tubular necrosis [Fatal]
  - Nephropathy [Fatal]
